FAERS Safety Report 7307784-3 (Version None)
Quarter: 2011Q1

REPORT INFORMATION
  Report Type: 
  Country: None (occurrence: None)
  Receive Date: 20110223
  Receipt Date: 20110217
  Transmission Date: 20110831
  Serious: Yes (Hospitalization)
  Sender: FDA-Public Use
  Company Number: BR-ABBOTT-11P-020-0699889-00

PATIENT
  Weight: 70 kg

DRUGS (1)
  1. HUMIRA [Suspect]
     Indication: RHEUMATOID ARTHRITIS
     Dates: start: 20081025

REACTIONS (7)
  - BLOOD GLUCOSE INCREASED [None]
  - PYREXIA [None]
  - INFECTION [None]
  - BLOOD CHOLESTEROL INCREASED [None]
  - HYPOTENSION [None]
  - MALAISE [None]
  - LIPOMA [None]
